FAERS Safety Report 7819497 (Version 4)
Quarter: 2012Q4

REPORT INFORMATION
  Report Type: 
  Country: US (occurrence: US)
  Receive Date: 20110218
  Receipt Date: 20120928
  Transmission Date: 20130627
  Serious: Yes (Other)
  Sender: FDA-Public Use
  Company Number: US-US-EMD SERONO, INC.-7042046

PATIENT
  Age: 53 None
  Sex: Female
  Weight: 52 kg

DRUGS (8)
  1. REBIF [Suspect]
     Indication: MULTIPLE SCLEROSIS
     Route: 058
     Dates: start: 20061103
  2. REBIF [Suspect]
     Route: 058
     Dates: start: 20100822
  3. TYLENOL [Concomitant]
     Indication: PREMEDICATION
  4. ARMOUR THYROID [Concomitant]
     Indication: HYPOTHYROIDISM
  5. SYNTHROID [Concomitant]
     Indication: HYPOTHYROIDISM
  6. PHENOBARBITOL [Concomitant]
     Indication: CONVULSION
     Dates: start: 1977
  7. METOPROLOL [Concomitant]
     Indication: HEART RATE INCREASED
  8. ADVIL [Concomitant]
     Indication: PREMEDICATION

REACTIONS (2)
  - Haemochromatosis [Not Recovered/Not Resolved]
  - Porphyria non-acute [Unknown]
